FAERS Safety Report 10262635 (Version 2)
Quarter: 2014Q2

REPORT INFORMATION
  Report Type: Report from Study
  Country: US (occurrence: US)
  Receive Date: 20140626
  Receipt Date: 20140626
  Transmission Date: 20141212
  Serious: Yes (Other)
  Sender: FDA-Public Use
  Company Number: US-MYLANLABS-2013S1008512

PATIENT
  Age: 68 Year
  Sex: Female
  Weight: 89.81 kg

DRUGS (4)
  1. CLOZAPINE TABLETS [Suspect]
     Indication: HALLUCINATION
     Route: 048
     Dates: end: 20131128
  2. CLOZAPINE TABLETS [Suspect]
     Indication: PARANOIA
     Route: 048
     Dates: end: 20131128
  3. DEPAKOTE [Concomitant]
  4. KEPPRA [Concomitant]

REACTIONS (1)
  - Granulocytopenia [Recovered/Resolved]
